FAERS Safety Report 7293295-0 (Version None)
Quarter: 2011Q1

REPORT INFORMATION
  Report Type: 
  Country: None (occurrence: None)
  Receive Date: 20110215
  Receipt Date: 20110201
  Transmission Date: 20110831
  Serious: Yes (Hospitalization)
  Sender: FDA-Public Use
  Company Number: SA-WATSON-2011-01824

PATIENT
  Age: 20 Year
  Sex: Female

DRUGS (1)
  1. CITALOPRAM HYDROBROMIDE [Suspect]
     Indication: SUICIDE ATTEMPT
     Dosage: 1800 MG, SINGLE
     Route: 048

REACTIONS (4)
  - SUICIDE ATTEMPT [None]
  - METABOLIC ACIDOSIS [None]
  - OVERDOSE [None]
  - GRAND MAL CONVULSION [None]
